FAERS Safety Report 11150415 (Version 2)
Quarter: 2015Q3

REPORT INFORMATION
  Report Type: Spontaneous
  Country: GR (occurrence: GR)
  Receive Date: 20150531
  Receipt Date: 20150709
  Transmission Date: 20151125
  Serious: Yes (Hospitalization, Other)
  Sender: FDA-Public Use
  Company Number: GR-BRISTOL-MYERS SQUIBB COMPANY-BMS-2015-034280

PATIENT
  Age: 57 Year
  Sex: Male

DRUGS (1)
  1. GLUCOPHAGE [Suspect]
     Active Substance: METFORMIN HYDROCHLORIDE
     Indication: DIABETES MELLITUS
     Dosage: 850 MG, QD
     Route: 065
     Dates: start: 201501, end: 20150501

REACTIONS (5)
  - Neuritis [Unknown]
  - Guillain-Barre syndrome [Not Recovered/Not Resolved]
  - Gastroenteritis [Unknown]
  - Sensory loss [Unknown]
  - Diarrhoea [Recovered/Resolved]

NARRATIVE: CASE EVENT DATE: 201501
